FAERS Safety Report 9364160 (Version 1)
Quarter: 2013Q2

REPORT INFORMATION
  Report Type: Spontaneous
  Country: AT (occurrence: AT)
  Receive Date: 20130624
  Receipt Date: 20130624
  Transmission Date: 20140414
  Serious: Yes (Other)
  Sender: FDA-Public Use
  Company Number: AT-JNJFOC-20130611321

PATIENT
  Age: 60 Year
  Sex: Female

DRUGS (1)
  1. XARELTO [Suspect]
     Indication: DEEP VEIN THROMBOSIS
     Route: 048

REACTIONS (4)
  - Haemorrhage [Recovered/Resolved with Sequelae]
  - Gastrointestinal angiodysplasia [Unknown]
  - Pulmonary embolism [Unknown]
  - Haemorrhage [Unknown]
